FAERS Safety Report 6216315-0 (Version None)
Quarter: 2009Q2

REPORT INFORMATION
  Report Type: 
  Country: None (occurrence: None)
  Receive Date: 20090605
  Receipt Date: 20090527
  Transmission Date: 20091009
  Serious: Yes (Other)
  Sender: FDA-Public Use
  Company Number: US-GILEAD-2009-0022247

PATIENT
  Age: 17 Year
  Sex: Female

DRUGS (3)
  1. TRUVADA [Suspect]
     Indication: HIV INFECTION
     Route: 048
     Dates: start: 20081218
  2. REYATAZ [Concomitant]
     Indication: HIV INFECTION
     Dates: start: 20081218
  3. NORVIR [Concomitant]
     Indication: HIV INFECTION
     Dates: start: 20081218

REACTIONS (2)
  - GESTATIONAL DIABETES [None]
  - STILLBIRTH [None]
